FAERS Safety Report 7897123-1 (Version None)
Quarter: 2011Q4

REPORT INFORMATION
  Report Type: 
  Country: None (occurrence: None)
  Receive Date: 20111107
  Receipt Date: 20111024
  Transmission Date: 20120403
  Serious: Yes (Death)
  Sender: FDA-Public Use
  Company Number: ES-ELI_LILLY_AND_COMPANY-ES201110006489

PATIENT
  Sex: Female
  Weight: 60 kg

DRUGS (6)
  1. OMEPRAZOLE [Concomitant]
     Indication: GASTRIC DISORDER
     Dosage: 1 DF, QD
     Route: 048
  2. NOVOMIX                            /01475801/ [Concomitant]
     Indication: DIABETES MELLITUS
     Route: 058
  3. ZOLPIDEM [Concomitant]
     Indication: RESTLESSNESS
     Dosage: 1 DF, QD
     Route: 048
  4. FORTEO [Suspect]
     Indication: OSTEOPOROSIS
     Dosage: 20 UG, QD
     Route: 058
     Dates: start: 20101022, end: 20110801
  5. TERMALGIN [Concomitant]
     Indication: PAIN
     Dosage: 1 DF, PRN
     Route: 048
  6. XELODA [Concomitant]
     Indication: COLON CANCER
     Dosage: 1 DF, QD
     Route: 048

REACTIONS (1)
  - METASTASES TO CENTRAL NERVOUS SYSTEM [None]
